FAERS Safety Report 6222147-X (Version None)
Quarter: 2009Q2

REPORT INFORMATION
  Report Type: 
  Country: None (occurrence: None)
  Receive Date: 20090611
  Receipt Date: 20090603
  Transmission Date: 20091009
  Serious: Yes (Other)
  Sender: FDA-Public Use
  Company Number: US-ROCHE-597940

PATIENT
  Sex: Female

DRUGS (7)
  1. PEG-INTERFERON A-2A (RO 25-8310) [Suspect]
     Indication: HEPATITIS C
     Dosage: FORM: PREFILLED SYRINGE PATIENT IN WEEK 37
     Route: 065
     Dates: start: 20080923
  2. RIBASPHERE [Suspect]
     Indication: HEPATITIS C
     Dosage: DIVIDED DOSES PATIENT IN WEEK 37
     Route: 065
     Dates: start: 20080923
  3. LEXAPRO [Concomitant]
  4. LISINOPRIL [Concomitant]
  5. SYNTHROID [Concomitant]
  6. FUROSEMIDE [Concomitant]
  7. HYDROXYZINE [Concomitant]

REACTIONS (12)
  - AMENORRHOEA [None]
  - DECREASED APPETITE [None]
  - DYSGEUSIA [None]
  - GLOSSITIS [None]
  - HYPOTHYROIDISM [None]
  - LUNG INFECTION [None]
  - MIGRAINE [None]
  - MOOD SWINGS [None]
  - OSTEOARTHRITIS [None]
  - OSTEOPOROSIS [None]
  - SCOLIOSIS [None]
  - WEIGHT DECREASED [None]
